FAERS Safety Report 9798734 (Version 2)
Quarter: 2015Q3

REPORT INFORMATION
  Report Type: Spontaneous
  Country: US (occurrence: US)
  Receive Date: 20140106
  Receipt Date: 20150806
  Transmission Date: 20151125
  Serious: No
  Sender: FDA-Public Use
  Company Number: US-GILEAD-2010-0029954

PATIENT
  Age: 48 Year
  Sex: Male

DRUGS (7)
  1. PRILOSEC [Concomitant]
     Active Substance: OMEPRAZOLE MAGNESIUM
  2. SPIRONOLACTONE. [Concomitant]
     Active Substance: SPIRONOLACTONE
  3. ERGOCALCIFEROL/NICOTINAMIDE/RETINOL/ASCORBIC ACID/FOLIC ACID/PANTHENOL/RIBOFLAVIN/THIAMINE HYDROCHLO [Concomitant]
  4. FUROSEMIDE. [Concomitant]
     Active Substance: FUROSEMIDE
  5. LETAIRIS [Suspect]
     Active Substance: AMBRISENTAN
     Indication: PULMONARY ARTERIAL HYPERTENSION
     Route: 048
     Dates: start: 20091207, end: 20100525
  6. LACTULOSE. [Concomitant]
     Active Substance: LACTULOSE
  7. NADOLOL. [Concomitant]
     Active Substance: NADOLOL

REACTIONS (2)
  - Haemoglobin decreased [Unknown]
  - Oedema [Unknown]
